FAERS Safety Report 7722740-9 (Version None)
Quarter: 2011Q3

REPORT INFORMATION
  Report Type: 
  Country: None (occurrence: None)
  Receive Date: 20110831
  Receipt Date: 20110818
  Transmission Date: 20111222
  Serious: No
  Sender: FDA-Public Use
  Company Number: US-B.I. PHARMACEUTICALS,INC./RIDGEFIELD-2011-BP-18891BP

PATIENT
  Sex: Female

DRUGS (5)
  1. LIPITOR [Concomitant]
     Indication: BLOOD CHOLESTEROL INCREASED
     Dates: start: 20060101
  2. METOPROLOL TARTRATE [Concomitant]
     Indication: AORTIC ANEURYSM
     Dates: start: 20080101
  3. DIOVAN [Concomitant]
     Indication: HYPERTENSION
     Dates: start: 20050101
  4. PRADAXA [Suspect]
     Indication: ATRIAL FIBRILLATION
     Dosage: 300 MG
     Route: 048
     Dates: start: 20110301
  5. RYTHMOL [Concomitant]
     Indication: ATRIAL FIBRILLATION
     Dates: start: 20030101

REACTIONS (3)
  - FLATULENCE [None]
  - FAECES DISCOLOURED [None]
  - ATRIAL FIBRILLATION [None]
